FAERS Safety Report 18568709 (Version 2)
Quarter: 2021Q3

REPORT INFORMATION
  Report Type: Report from Study
  Country: BR (occurrence: BR)
  Receive Date: 20201202
  Receipt Date: 20210817
  Transmission Date: 20211014
  Serious: Yes (Other)
  Sender: FDA-Public Use
  Company Number: NVSC2020BR302337

PATIENT
  Sex: Female
  Weight: 60 kg

DRUGS (13)
  1. COSENTYX [Suspect]
     Active Substance: SECUKINUMAB
     Dosage: UNK
     Route: 065
  2. INDOMETHACIN. [Suspect]
     Active Substance: INDOMETHACIN
     Dosage: (ONE TABLET)25 MG, QD
     Route: 048
     Dates: start: 2020, end: 2020
  3. DULOXETINE. [Concomitant]
     Active Substance: DULOXETINE
     Indication: PROPHYLAXIS
     Dosage: 30 MG, QD (ONE TABLET)
     Route: 048
     Dates: start: 202002
  4. COSENTYX [Suspect]
     Active Substance: SECUKINUMAB
     Dosage: UNK
     Route: 065
  5. SULFASALAZINE. [Suspect]
     Active Substance: SULFASALAZINE
     Indication: ANKYLOSING SPONDYLITIS
     Dosage: 1000 MG, BID (500MG IN THE MORNINGAND 500 AT NIGHT)
     Route: 065
     Dates: start: 201910
  6. INDOMETHACIN. [Suspect]
     Active Substance: INDOMETHACIN
     Indication: ANKYLOSING SPONDYLITIS
     Dosage: 50 MG, QD (ONE TABLET)
     Route: 048
     Dates: start: 2020, end: 2020
  7. BACLOFEN. [Concomitant]
     Active Substance: BACLOFEN
     Indication: MEMORY IMPAIRMENT
     Dosage: 5 MG, QD (ONE TABLET)
     Route: 048
     Dates: start: 202007
  8. COSENTYX [Suspect]
     Active Substance: SECUKINUMAB
     Indication: ANKYLOSING SPONDYLITIS
     Dosage: 150 MG, QMO
     Route: 058
     Dates: start: 20191018
  9. COSENTYX [Suspect]
     Active Substance: SECUKINUMAB
     Indication: SPONDYLITIS
     Dosage: UNK
     Route: 065
     Dates: start: 20200920
  10. COSENTYX [Suspect]
     Active Substance: SECUKINUMAB
     Dosage: UNK
     Route: 065
     Dates: start: 20210711
  11. MEMANTINE. [Concomitant]
     Active Substance: MEMANTINE
     Indication: MEMORY IMPAIRMENT
     Dosage: 10 MG, QD (ONE TABLET)
     Route: 048
     Dates: start: 202007
  12. NORTRIPTYLINE [Concomitant]
     Active Substance: NORTRIPTYLINE
     Indication: MEMORY IMPAIRMENT
     Dosage: 20 MG, QD (ONE TABLET)
     Route: 048
     Dates: start: 202007
  13. COSENTYX [Suspect]
     Active Substance: SECUKINUMAB
     Dosage: UNK
     Route: 065
     Dates: start: 20210612

REACTIONS (15)
  - Dyspepsia [Not Recovered/Not Resolved]
  - Emotional disorder [Unknown]
  - Amnesia [Recovering/Resolving]
  - Ear pain [Unknown]
  - Abdominal pain upper [Not Recovered/Not Resolved]
  - Drug ineffective [Not Recovered/Not Resolved]
  - Ankylosing spondylitis [Recovering/Resolving]
  - Spinal column injury [Recovering/Resolving]
  - Arthralgia [Recovered/Resolved]
  - Joint injury [Unknown]
  - Headache [Recovered/Resolved]
  - Spondylitis [Unknown]
  - Neck pain [Recovering/Resolving]
  - Ill-defined disorder [Unknown]
  - Product dose omission issue [Unknown]

NARRATIVE: CASE EVENT DATE: 2020
